FAERS Safety Report 7674804-6 (Version None)
Quarter: 2011Q3

REPORT INFORMATION
  Report Type: 
  Country: None (occurrence: None)
  Receive Date: 20110810
  Receipt Date: 20110805
  Transmission Date: 20111222
  Serious: Yes (Other)
  Sender: FDA-Public Use
  Company Number: DE-GLAXOSMITHKLINE-D0071923A

PATIENT
  Sex: Male

DRUGS (6)
  1. CLONAZEPAM [Suspect]
     Route: 065
  2. LEVODOPA [Suspect]
     Dosage: 125MG FOUR TIMES PER DAY
     Route: 065
  3. TAMSULOSIN HCL [Suspect]
     Route: 065
  4. MIRTAZAPINE [Suspect]
     Route: 065
  5. REQUIP [Suspect]
     Indication: PARKINSON'S DISEASE
     Dosage: 16MG PER DAY
     Route: 065
  6. LEVOCARB [Suspect]
     Route: 065

REACTIONS (9)
  - DRUG INTERACTION [None]
  - CONDITION AGGRAVATED [None]
  - TREMOR [None]
  - DIZZINESS [None]
  - MICTURITION URGENCY [None]
  - SYNCOPE [None]
  - DROOLING [None]
  - RESTLESSNESS [None]
  - MEMORY IMPAIRMENT [None]
